FAERS Safety Report 20962858 (Version 2)
Quarter: 2022Q2

REPORT INFORMATION
  Report Type: Report from Study
  Country: US (occurrence: US)
  Receive Date: 20220615
  Receipt Date: 20220627
  Transmission Date: 20220721
  Serious: Yes (Hospitalization, Congenital Anomaly, Other)
  Sender: FDA-Public Use
  Company Number: US-PREGISTRY-2022-US-00514

PATIENT
  Sex: Female
  Weight: 3.06 kg

DRUGS (3)
  1. REMDESIVIR [Suspect]
     Active Substance: REMDESIVIR
     Indication: COVID-19
     Dosage: UNK, BID
     Route: 050
     Dates: start: 20211102, end: 20211105
  2. CORGARD [Concomitant]
     Active Substance: NADOLOL
     Dosage: UNK, QD
     Route: 050
     Dates: start: 20210705
  3. MINERALS\VITAMINS [Concomitant]
     Active Substance: MINERALS\VITAMINS
     Dosage: UNK, QD
     Route: 050

REACTIONS (4)
  - Long QT syndrome congenital [Not Recovered/Not Resolved]
  - Foetal heart rate decreased [Unknown]
  - Umbilical cord around neck [Unknown]
  - Foetal exposure during pregnancy [Recovered/Resolved]

NARRATIVE: CASE EVENT DATE: 20211102
